FAERS Safety Report 9937165 (Version 2)
Quarter: 2014Q1

REPORT INFORMATION
  Report Type: Spontaneous
  Country: DE (occurrence: DE)
  Receive Date: 20140301
  Receipt Date: 20140301
  Transmission Date: 20141002
  Serious: Yes (Life-Threatening, Hospitalization)
  Sender: FDA-Public Use
  Company Number: DE-ASTRAZENECA-2014SE08500

PATIENT
  Age: 867 Month
  Sex: Female

DRUGS (10)
  1. BRILIQUE [Suspect]
     Indication: ATRIAL FIBRILLATION
     Route: 048
     Dates: start: 20131224, end: 20140127
  2. BRILIQUE [Suspect]
     Indication: CORONARY ARTERIAL STENT INSERTION
     Route: 048
     Dates: start: 20131224, end: 20140127
  3. PRADAXA [Suspect]
     Indication: ATRIAL FIBRILLATION
     Route: 048
     Dates: start: 20131224, end: 20140127
  4. PRADAXA [Suspect]
     Indication: CORONARY ARTERIAL STENT INSERTION
     Route: 048
     Dates: start: 20131224, end: 20140127
  5. BETA BLOCKER [Concomitant]
  6. ACE INHIBITOR [Concomitant]
  7. DIURETIC [Concomitant]
  8. GASTRIC PROTECTION [Concomitant]
  9. SIMVASTATIN [Concomitant]
  10. DECORTIN [Concomitant]

REACTIONS (5)
  - Anaemia [Unknown]
  - Pneumonia [Unknown]
  - Pulmonary haemorrhage [Not Recovered/Not Resolved]
  - Haemoptysis [Unknown]
  - Gingival bleeding [Unknown]
